FAERS Safety Report 23890212 (Version 1)
Quarter: 2024Q2

REPORT INFORMATION
  Report Type: Other
  Country: US (occurrence: US)
  Receive Date: 20240523
  Receipt Date: 20240523
  Transmission Date: 20240716
  Serious: Yes (Life-Threatening, Hospitalization)
  Sender: FDA-Public Use
  Company Number: US-Merck Healthcare KGaA-2024026542

PATIENT
  Age: 68 Year
  Sex: Male

DRUGS (1)
  1. AVELUMAB [Suspect]
     Active Substance: AVELUMAB
     Indication: Transitional cell cancer of the renal pelvis and ureter

REACTIONS (3)
  - Multiple organ dysfunction syndrome [Recovering/Resolving]
  - Myasthenia gravis [Recovering/Resolving]
  - Myositis [Recovering/Resolving]
